FAERS Safety Report 5990083-X (Version None)
Quarter: 2008Q4

REPORT INFORMATION
  Report Type: 
  Country: None (occurrence: None)
  Receive Date: 20081211
  Receipt Date: 20081203
  Transmission Date: 20090506
  Serious: Yes (Hospitalization)
  Sender: FDA-Public Use
  Company Number: JP-BRISTOL-MYERS SQUIBB COMPANY-14438915

PATIENT
  Age: 55 Year
  Sex: Female

DRUGS (2)
  1. ABILIFY [Suspect]
     Indication: SCHIZOPHRENIA
     Dosage: 26AUG08-CONTI(6MG/DAY);07OCT08-(18MG/DAY)
     Route: 048
     Dates: start: 20080826
  2. SEROQUEL [Concomitant]

REACTIONS (1)
  - ANAEMIA [None]
